FAERS Safety Report 17903704 (Version 3)
Quarter: 2020Q3

REPORT INFORMATION
  Report Type: Spontaneous
  Country: DE (occurrence: DE)
  Receive Date: 20200616
  Receipt Date: 20200703
  Transmission Date: 20201103
  Serious: Yes (Other)
  Sender: FDA-Public Use
  Company Number: DE-PFIZER INC-2020232716

PATIENT
  Sex: Female

DRUGS (10)
  1. CARMENTHIN (HERBALS) [Concomitant]
     Active Substance: HERBALS
     Dosage: UNK
  2. PEPPERMINT OIL [Concomitant]
     Active Substance: PEPPERMINT OIL
     Dosage: UNK
  3. CARMENTHIN (HERBALS) [Suspect]
     Active Substance: HERBALS
     Dosage: UNK
     Route: 065
  4. BUDENOFALK [Concomitant]
     Active Substance: BUDESONIDE
     Dosage: 9 MG
  5. BUDENOFALK [Suspect]
     Active Substance: BUDESONIDE
     Dosage: UNK
     Route: 065
  6. CHOLECALCIFEROL [Concomitant]
     Active Substance: CHOLECALCIFEROL
     Dosage: UNK
  7. ACURMIN PLUS [Suspect]
     Active Substance: HERBALS\TURMERIC
     Dosage: UNK
     Route: 065
  8. ACURMIN PLUS [Concomitant]
     Active Substance: HERBALS\TURMERIC
     Dosage: UNK
  9. PANTOPRAZOLE [Suspect]
     Active Substance: PANTOPRAZOLE
     Indication: ABDOMINAL DISCOMFORT
     Dosage: UNK
  10. CHOLECALCIFEROL [Suspect]
     Active Substance: CHOLECALCIFEROL
     Dosage: UNK
     Route: 065

REACTIONS (5)
  - Fatigue [Not Recovered/Not Resolved]
  - No adverse event [Unknown]
  - Crohn^s disease [Not Recovered/Not Resolved]
  - Stool analysis abnormal [Not Recovered/Not Resolved]
  - Listless [Not Recovered/Not Resolved]
